FAERS Safety Report 14974561 (Version 1)
Quarter: 2018Q2

REPORT INFORMATION
  Report Type: Spontaneous
  Country: IN (occurrence: IN)
  Receive Date: 20180605
  Receipt Date: 20180605
  Transmission Date: 20180711
  Serious: Yes (Death, Hospitalization)
  Sender: FDA-Public Use
  Company Number: IN-OXFORD PHARMACEUTICALS, LLC-2018OXF00057

PATIENT
  Age: 27 Year
  Sex: Female

DRUGS (2)
  1. PARACETAMOL [Concomitant]
     Active Substance: ACETAMINOPHEN
     Indication: ANALGESIC THERAPY
     Dosage: 500 MG, 2X/DAY
     Route: 048
  2. ETODOLAC. [Suspect]
     Active Substance: ETODOLAC
     Indication: ANALGESIC THERAPY
     Dosage: 400 MG, 2X/DAY
     Route: 048

REACTIONS (4)
  - Drug-induced liver injury [Fatal]
  - Intracranial pressure increased [Fatal]
  - Multi-organ disorder [Fatal]
  - Encephalopathy [Not Recovered/Not Resolved]
